FAERS Safety Report 9701622 (Version 2)
Quarter: 2014Q1

REPORT INFORMATION
  Report Type: Spontaneous
  Country: US (occurrence: US)
  Receive Date: 20131121
  Receipt Date: 20140203
  Transmission Date: 20141002
  Serious: No
  Sender: FDA-Public Use
  Company Number: US-GILEAD-2013-0088059

PATIENT
  Age: 60 Year
  Sex: Male

DRUGS (6)
  1. LETAIRIS [Suspect]
     Indication: PRODUCT USED FOR UNKNOWN INDICATION
     Dosage: 5 MG, QD
     Route: 048
     Dates: start: 20130415
  2. FUROSEMIDE [Concomitant]
  3. AMIODARONE [Concomitant]
  4. METOPROLOL [Concomitant]
  5. COUMADIN                           /00014802/ [Concomitant]
  6. TIZANIDINE [Concomitant]

REACTIONS (2)
  - Dyspnoea [Unknown]
  - Nasal congestion [Not Recovered/Not Resolved]
